FAERS Safety Report 24947586 (Version 1)
Quarter: 2025Q1

REPORT INFORMATION
  Report Type: Report from Study
  Country: US (occurrence: US)
  Receive Date: 20250210
  Receipt Date: 20250210
  Transmission Date: 20250408
  Serious: Yes (Other)
  Sender: ABBVIE
  Company Number: US-ABBVIE-6124396

PATIENT
  Age: 78 Year
  Sex: Female

DRUGS (1)
  1. VENCLEXTA [Suspect]
     Active Substance: VENETOCLAX
     Indication: Chronic lymphocytic leukaemia
     Dosage: TAKE 4 TABLETS (400MG TOTAL) BY MOUTH DAILY WITH A MEAL AND WATER AT APPROXIMATELY THE SAME TIME ...
     Route: 048

REACTIONS (4)
  - Cataract [Unknown]
  - Upper limb fracture [Unknown]
  - Fall [Unknown]
  - Tendonitis [Unknown]

NARRATIVE: CASE EVENT DATE: 20241218
